FAERS Safety Report 17567628 (Version 1)
Quarter: 2020Q1

REPORT INFORMATION
  Report Type: Spontaneous
  Country: CA (occurrence: CA)
  Receive Date: 20200320
  Receipt Date: 20200320
  Transmission Date: 20200409
  Serious: Yes (Other)
  Sender: FDA-Public Use
  Company Number: CA-NOVOPROD-719285

PATIENT
  Age: 71 Year
  Sex: Female
  Weight: 78 kg

DRUGS (2)
  1. VICTOZA [Suspect]
     Active Substance: LIRAGLUTIDE
     Indication: TYPE 2 DIABETES MELLITUS
     Dosage: UNK
     Route: 058
  2. CORTISONE [Suspect]
     Active Substance: CORTISONE
     Indication: PNEUMONIA
     Dosage: UNK
     Route: 065

REACTIONS (2)
  - Blood glucose increased [Unknown]
  - Pneumonia [Unknown]
